FAERS Safety Report 17669972 (Version 2)
Quarter: 2020Q2

REPORT INFORMATION
  Report Type: Spontaneous
  Country: US (occurrence: US)
  Receive Date: 20200415
  Receipt Date: 20200615
  Transmission Date: 20200713
  Serious: Yes (Other)
  Sender: FDA-Public Use
  Company Number: US-PFIZER INC-2020153348

PATIENT
  Age: 92 Year
  Sex: Female

DRUGS (2)
  1. ADVIL [Suspect]
     Active Substance: IBUPROFEN
     Indication: TOOTHACHE
     Dosage: UNK, DAILY (TAKING 1-2 ADVIL DAILY)
  2. ADVIL [Suspect]
     Active Substance: IBUPROFEN
     Indication: PAIN

REACTIONS (4)
  - Movement disorder [Recovering/Resolving]
  - Dysphagia [Recovering/Resolving]
  - Transient ischaemic attack [Recovering/Resolving]
  - Jaw disorder [Recovering/Resolving]
